FAERS Safety Report 12921976 (Version 1)
Quarter: 2016Q4

REPORT INFORMATION
  Report Type: Spontaneous
  Country: IT (occurrence: FR)
  Receive Date: 20161108
  Receipt Date: 20161108
  Transmission Date: 20170207
  Serious: Yes (Hospitalization, Other)
  Sender: FDA-Public Use
  Company Number: IT-SIGMA-TAU US-2016STPI000856

PATIENT
  Age: 48 Year
  Sex: Female

DRUGS (7)
  1. KEPPRA [Concomitant]
     Active Substance: LEVETIRACETAM
  2. VINCRISTINE [Concomitant]
     Active Substance: VINCRISTINE
     Indication: GLIOMA
     Dosage: UNK
     Dates: start: 201512
  3. MATULANE [Suspect]
     Active Substance: PROCARBAZINE HYDROCHLORIDE
     Indication: GLIOMA
     Dosage: 50 MG, UNK
     Route: 048
     Dates: start: 20151223, end: 20160105
  4. LOMUSTINE. [Suspect]
     Active Substance: LOMUSTINE
     Indication: GLIOMA
     Dosage: UNK
     Dates: start: 201512
  5. SOLUPRED                           /00016201/ [Concomitant]
     Active Substance: PREDNISOLONE
  6. LYRICA [Concomitant]
     Active Substance: PREGABALIN
  7. RADIOTHERAPY [Suspect]
     Active Substance: RADIATION THERAPY
     Dosage: UNK
     Dates: start: 201601

REACTIONS (4)
  - Drug-induced liver injury [Recovering/Resolving]
  - Abdominal pain [Unknown]
  - Vomiting [Unknown]
  - Oesophagitis [Unknown]

NARRATIVE: CASE EVENT DATE: 2016
